FAERS Safety Report 5515983-6 (Version None)
Quarter: 2007Q4

REPORT INFORMATION
  Report Type: 
  Country: None (occurrence: None)
  Receive Date: 20071114
  Receipt Date: 20061107
  Transmission Date: 20080405
  Serious: No
  Sender: FDA-Public Use
  Company Number: A0626265A

PATIENT
  Sex: Male

DRUGS (1)
  1. COMMIT [Suspect]
     Dates: start: 20061106, end: 20061106

REACTIONS (6)
  - DIZZINESS [None]
  - EYE DISORDER [None]
  - HEART RATE INCREASED [None]
  - MALAISE [None]
  - PANIC REACTION [None]
  - TREMOR [None]
